FAERS Safety Report 8212138-1 (Version None)
Quarter: 2012Q1

REPORT INFORMATION
  Report Type: 
  Country: None (occurrence: None)
  Receive Date: 20120315
  Receipt Date: 20120313
  Transmission Date: 20120608
  Serious: Yes (Life-Threatening, Hospitalization)
  Sender: FDA-Public Use
  Company Number: PHHY2011DE73194

PATIENT
  Sex: Male
  Weight: 79 kg

DRUGS (8)
  1. TORSEMIDE [Concomitant]
     Dosage: 5 MG, QD
     Route: 048
  2. LEVOTHYROXINE SODIUM [Concomitant]
     Dosage: 100 UG, QD
     Route: 048
  3. ALLOPURINOL [Concomitant]
     Dosage: 100 MG, QD
     Route: 048
  4. AFINITOR [Suspect]
     Indication: RENAL CELL CARCINOMA
     Dosage: 10 MG, DAILY
     Route: 048
     Dates: start: 20110503, end: 20110805
  5. AFINITOR [Suspect]
     Dosage: 5 MG, DAILY
     Route: 048
     Dates: start: 20110816, end: 20120112
  6. METOPROLOL SUCCINATE [Concomitant]
     Dosage: 47.5 MG, QD
     Route: 048
  7. ASPIRIN [Concomitant]
     Dosage: 100 MG, QD
     Route: 048
  8. DIOVAN [Concomitant]
     Dosage: 80 MG, QD
     Route: 048

REACTIONS (4)
  - LEFT VENTRICULAR FAILURE [None]
  - DYSPNOEA [None]
  - MOUTH ULCERATION [None]
  - ACUTE MYOCARDIAL INFARCTION [None]
